FAERS Safety Report 17647125 (Version 1)
Quarter: 2020Q2

REPORT INFORMATION
  Report Type: Spontaneous
  Country: DE (occurrence: ZA)
  Receive Date: 20200408
  Receipt Date: 20200408
  Transmission Date: 20200713
  Serious: Yes (Other)
  Sender: FDA-Public Use
  Company Number: DE-PFIZER INC-2020142476

PATIENT
  Age: 23 Year
  Sex: Female

DRUGS (19)
  1. ISONIAZID. [Suspect]
     Active Substance: ISONIAZID
     Dosage: 600 MG, UNK
     Route: 048
     Dates: start: 20181207, end: 20190804
  2. DELAMANID [Suspect]
     Active Substance: DELAMANID
     Indication: PULMONARY TUBERCULOSIS
     Dosage: 100 MG, 2X/DAY
     Route: 048
     Dates: start: 20181221, end: 20190408
  3. TERIZIDONE [Suspect]
     Active Substance: TERIZIDONE
     Dosage: 500 MG, 1X/DAY
     Route: 048
     Dates: start: 20190301, end: 20190408
  4. CLOFAZIMINE [Suspect]
     Active Substance: CLOFAZIMINE
     Indication: PULMONARY TUBERCULOSIS
     Dosage: 100 MG, 1X/DAY
     Route: 048
     Dates: start: 20181207, end: 20190408
  5. CLOFAZIMINE [Suspect]
     Active Substance: CLOFAZIMINE
     Dosage: 100 MG, 1X/DAY
     Route: 048
  6. RALTEGRAVIR. [Suspect]
     Active Substance: RALTEGRAVIR
     Dosage: UNK
  7. AMINOSALICYLIC ACID [Suspect]
     Active Substance: AMINOSALICYLIC ACID
     Indication: PULMONARY TUBERCULOSIS
     Dosage: 8 G, 1X/DAY
     Route: 048
  8. EMTRICITABINA E TENOFOVIR DISOPROXIL EG [Concomitant]
     Dosage: UNK
  9. PYRIDOXINE [Concomitant]
     Active Substance: PYRIDOXINE
     Dosage: UNK
  10. ISONIAZID. [Suspect]
     Active Substance: ISONIAZID
     Indication: PULMONARY TUBERCULOSIS
     Dosage: 600 MG, UNK
     Route: 048
  11. DELAMANID [Suspect]
     Active Substance: DELAMANID
     Dosage: UNK
     Route: 065
  12. TERIZIDONE [Suspect]
     Active Substance: TERIZIDONE
     Indication: PULMONARY TUBERCULOSIS
     Dosage: 500 MG, 1X/DAY
     Route: 048
  13. AMINOSALICYLIC ACID [Suspect]
     Active Substance: AMINOSALICYLIC ACID
     Dosage: 8 G, 1X/DAY
     Route: 048
     Dates: start: 20190101, end: 20190408
  14. LINEZOLID. [Suspect]
     Active Substance: LINEZOLID
     Indication: PULMONARY TUBERCULOSIS
     Dosage: 600 MG, UNK
     Route: 048
     Dates: start: 20190201, end: 20190408
  15. PYRAZINAMIDE. [Suspect]
     Active Substance: PYRAZINAMIDE
     Indication: PULMONARY TUBERCULOSIS
     Dosage: 1 G, 1X/DAY
     Route: 048
  16. BEDAQUILINE [Suspect]
     Active Substance: BEDAQUILINE
     Dosage: 200 MG, 1X/DAY
     Route: 048
  17. BEDAQUILINE [Suspect]
     Active Substance: BEDAQUILINE
     Indication: PULMONARY TUBERCULOSIS
     Dosage: 200 MG, 1X/DAY
     Route: 048
     Dates: start: 20181221, end: 20190408
  18. LINEZOLID. [Suspect]
     Active Substance: LINEZOLID
     Dosage: 600 MG, UNK
     Route: 048
     Dates: start: 20190426
  19. PYRAZINAMIDE. [Suspect]
     Active Substance: PYRAZINAMIDE
     Dosage: 1 G, 1X/DAY
     Route: 048
     Dates: start: 20181207, end: 20190408

REACTIONS (5)
  - Anaemia [Recovered/Resolved]
  - Off label use [Unknown]
  - Product use in unapproved indication [Unknown]
  - Product prescribing issue [Unknown]
  - Drug-induced liver injury [Recovered/Resolved]

NARRATIVE: CASE EVENT DATE: 20190201
